FAERS Safety Report 6030151-X (Version None)
Quarter: 2009Q1

REPORT INFORMATION
  Report Type: 
  Country: None (occurrence: None)
  Receive Date: 20090106
  Receipt Date: 20090106
  Transmission Date: 20090719
  Serious: Yes (Hospitalization)
  Sender: FDA-Public Use
  Company Number: None

PATIENT
  Age: 61 Year
  Sex: Male

DRUGS (2)
  1. IMIPENEM AND CILASTATIN SODIUM [Suspect]
     Indication: OSTEOMYELITIS
     Dosage: 500 MG QID IV
     Route: 042
     Dates: start: 20080303, end: 20080328
  2. PIPERACILLIN AND TAZOBACTAM [Suspect]
     Indication: OSTEOMYELITIS
     Dosage: 3.375 GM QID IV
     Route: 042
     Dates: start: 20080223, end: 20080303

REACTIONS (5)
  - CLOSTRIDIUM DIFFICILE COLITIS [None]
  - MORGANELLA INFECTION [None]
  - MULTI-ORGAN DISORDER [None]
  - SEPTIC SHOCK [None]
  - URINARY TRACT INFECTION [None]
